FAERS Safety Report 6011177-9 (Version None)
Quarter: 2008Q4

REPORT INFORMATION
  Report Type: 
  Country: None (occurrence: None)
  Receive Date: 20081218
  Receipt Date: 20081215
  Transmission Date: 20090506
  Serious: Yes (Hospitalization)
  Sender: FDA-Public Use
  Company Number: US-MERCK-0812USA03181

PATIENT
  Age: 68 Year
  Sex: Female

DRUGS (4)
  1. VYTORIN [Suspect]
     Indication: BLOOD CHOLESTEROL INCREASED
     Route: 048
     Dates: start: 20060101, end: 20080101
  2. PLAVIX [Concomitant]
     Route: 065
  3. LOPRESSOR [Concomitant]
     Route: 065
  4. ELAVIL [Concomitant]
     Route: 048

REACTIONS (2)
  - MUSCLE DISORDER [None]
  - MYOCARDIAL INFARCTION [None]
